FAERS Safety Report 8613782-X (Version None)
Quarter: 2012Q3

REPORT INFORMATION
  Report Type: 
  Country: None (occurrence: None)
  Receive Date: 20120823
  Receipt Date: 20120817
  Transmission Date: 20120928
  Serious: No
  Sender: FDA-Public Use
  Company Number: US-BIOGENIDEC-2012BI032248

PATIENT
  Age: 53 Year
  Sex: Female

DRUGS (1)
  1. TYSABRI [Suspect]
     Indication: MULTIPLE SCLEROSIS
     Route: 042
     Dates: start: 20100423

REACTIONS (5)
  - MUSCULAR WEAKNESS [None]
  - CENTRAL NERVOUS SYSTEM LESION [None]
  - LEUKOCYTOSIS [None]
  - PYREXIA [None]
  - WHITE BLOOD CELL COUNT ABNORMAL [None]
